FAERS Safety Report 8533215-1 (Version None)
Quarter: 2012Q3

REPORT INFORMATION
  Report Type: 
  Country: None (occurrence: None)
  Receive Date: 20120724
  Receipt Date: 20120718
  Transmission Date: 20120928
  Serious: Yes (Other)
  Sender: FDA-Public Use
  Company Number: US-PFIZER INC-2012174598

PATIENT
  Sex: Female
  Weight: 70.295 kg

DRUGS (3)
  1. PLAQUENIL [Concomitant]
     Indication: RHEUMATOID ARTHRITIS
     Dosage: UNK, 2X/DAY
  2. LYRICA [Suspect]
     Indication: FIBROMYALGIA
     Dosage: 150 MG, 2X/DAY
     Route: 048
  3. ULTRACET [Concomitant]
     Indication: PAIN
     Dosage: UNK, 3X/DAY

REACTIONS (4)
  - HYPERSENSITIVITY [None]
  - BRONCHITIS [None]
  - LARYNGITIS [None]
  - SNEEZING [None]
